FAERS Safety Report 14152954 (Version 1)
Quarter: 2017Q4

REPORT INFORMATION
  Report Type: Report from Study
  Country: NL (occurrence: NL)
  Receive Date: 20171102
  Receipt Date: 20171102
  Transmission Date: 20180321
  Serious: Yes (Hospitalization)
  Sender: FDA-Public Use
  Company Number: PHHO2014NL006746

PATIENT
  Age: 78 Year
  Sex: Male
  Weight: 100.6 kg

DRUGS (6)
  1. ACZ885 [Suspect]
     Active Substance: CANAKINUMAB
     Indication: CARDIOVASCULAR EVENT PROPHYLAXIS
     Dosage: 150 MG, QUARTERLY
     Route: 058
     Dates: start: 20130814
  2. LABETALOL [Concomitant]
     Active Substance: LABETALOL\LABETALOL HYDROCHLORIDE
     Indication: HYPERTENSION
     Dosage: UNK
     Route: 065
  3. CHLOORTALIDON [Concomitant]
     Indication: HYPERTENSION
     Dosage: 12.5 MG, QD
     Route: 065
     Dates: start: 20130212
  4. GRANISETRON [Concomitant]
     Active Substance: GRANISETRON
     Indication: HYPERTENSION
     Route: 065
  5. ASCAL (ACETYLSALICYLATE CALCIUM) [Concomitant]
     Active Substance: ASPIRIN CALCIUM
     Indication: ACUTE CORONARY SYNDROME
     Dosage: 80 MG, QD
     Route: 065
     Dates: start: 20130212
  6. ATENOLOL. [Concomitant]
     Active Substance: ATENOLOL
     Indication: HYPERTENSION
     Dosage: 50 MG, QD
     Route: 065
     Dates: start: 20130212

REACTIONS (1)
  - Cerebral ischaemia [Recovering/Resolving]

NARRATIVE: CASE EVENT DATE: 20140428
